FAERS Safety Report 21168148 (Version 1)
Quarter: 2022Q3

REPORT INFORMATION
  Report Type: Spontaneous
  Country: US (occurrence: None)
  Receive Date: 20220803
  Receipt Date: 20220803
  Transmission Date: 20221027
  Serious: No
  Sender: FDA-Public Use
  Company Number: None

PATIENT
  Age: 34 Year
  Sex: Female
  Weight: 75.75 kg

DRUGS (1)
  1. HUMIRA [Suspect]
     Active Substance: ADALIMUMAB
     Indication: Behcet^s syndrome
     Dosage: OTHER FREQUENCY : EVERY 2 WEEKS ;?
     Route: 058
     Dates: start: 201812

REACTIONS (5)
  - Malaise [None]
  - Disease recurrence [None]
  - Therapy interrupted [None]
  - Cough [None]
  - Fatigue [None]
